FAERS Safety Report 9397396 (Version 1)
Quarter: 2013Q3

REPORT INFORMATION
  Report Type: Report from Study
  Country: MX (occurrence: MX)
  Receive Date: 20130712
  Receipt Date: 20130712
  Transmission Date: 20140515
  Serious: Yes (Hospitalization)
  Sender: FDA-Public Use
  Company Number: MX-ROCHE-1247135

PATIENT
  Sex: Female

DRUGS (1)
  1. XELODA [Suspect]
     Indication: BREAST CANCER
     Dosage: FREQUENCY: DURING 14 DAYS AND 7 DAYS OF REST
     Route: 048
     Dates: start: 20120829

REACTIONS (2)
  - Pulmonary oedema [Recovered/Resolved]
  - Back pain [Unknown]
